FAERS Safety Report 14247472 (Version 5)
Quarter: 2018Q1

REPORT INFORMATION
  Report Type: Spontaneous
  Country: RU (occurrence: RU)
  Receive Date: 20171204
  Receipt Date: 20180315
  Transmission Date: 20180508
  Serious: Yes (Death, Life-Threatening, Hospitalization, Other)
  Sender: FDA-Public Use
  Company Number: RU-BRISTOL-MYERS SQUIBB COMPANY-BMS-2017-109383

PATIENT
  Age: 45 Year
  Sex: Male

DRUGS (3)
  1. DABRAFENIB W/TRAMETINIB [Suspect]
     Active Substance: DABRAFENIB\TRAMETINIB
     Indication: METASTATIC MALIGNANT MELANOMA
     Route: 065
  2. NIVOLUMAB [Suspect]
     Active Substance: NIVOLUMAB
     Indication: METASTATIC MALIGNANT MELANOMA
     Dosage: UNAVAILABLE
     Route: 065
  3. DEXAMETHASONE                      /00016002/ [Concomitant]
     Active Substance: DEXAMETHASONE SODIUM PHOSPHATE
     Indication: METASTASES TO CENTRAL NERVOUS SYSTEM
     Dosage: 16 MG, UNK
     Route: 042

REACTIONS (9)
  - Brain oedema [Unknown]
  - Hypopituitarism [Unknown]
  - Brain injury [Unknown]
  - Colitis [Unknown]
  - Blood testosterone decreased [Unknown]
  - Malignant neoplasm progression [Fatal]
  - Brain stem syndrome [Unknown]
  - Coma [Recovering/Resolving]
  - Adrenal insufficiency [Unknown]
